FAERS Safety Report 8841307 (Version 1)
Quarter: 2012Q4

REPORT INFORMATION
  Report Type: 
  Country: US (occurrence: US)
  Receive Date: 20121016
  Receipt Date: 20121016
  Transmission Date: 20130627
  Serious: No
  Sender: FDA-Public Use
  Company Number: US-009507513-1209USA005172

PATIENT
  Age: 18 Year
  Sex: Female

DRUGS (1)
  1. NUVARING [Suspect]
     Indication: CONTRACEPTION
     Dosage: 15 Microgram, daily intravaginally
     Route: 067

REACTIONS (5)
  - Headache [Recovered/Resolved]
  - Photophobia [Unknown]
  - Phonophobia [Unknown]
  - Movement disorder [Unknown]
  - Exertional headache [Unknown]
